FAERS Safety Report 24069180 (Version 2)
Quarter: 2024Q3

REPORT INFORMATION
  Report Type: Report from Study
  Country: IT (occurrence: IT)
  Receive Date: 20240710
  Receipt Date: 20240710
  Transmission Date: 20241017
  Serious: No
  Sender: ROCHE
  Company Number: IT-ROCHE-3507335

PATIENT
  Sex: Male
  Weight: 71.0 kg

DRUGS (1)
  1. ALECENSA [Suspect]
     Active Substance: ALECTINIB HYDROCHLORIDE
     Indication: Non-small cell lung cancer
     Dosage: 450 MG TWICE/DIE
     Route: 002
     Dates: start: 20220701, end: 20230630

REACTIONS (1)
  - Chronic obstructive pulmonary disease [Unknown]
